FAERS Safety Report 25722196 (Version 1)
Quarter: 2025Q3

REPORT INFORMATION
  Report Type: Spontaneous
  Country: US (occurrence: US)
  Receive Date: 20250825
  Receipt Date: 20250825
  Transmission Date: 20251020
  Serious: Yes (Other)
  Sender: PFIZER
  Company Number: US-PFIZER INC-PV202500099236

PATIENT
  Age: 37 Year
  Sex: Female

DRUGS (4)
  1. ATRACURIUM BESYLATE [Interacting]
     Active Substance: ATRACURIUM BESYLATE
  2. VECURONIUM BROMIDE [Interacting]
     Active Substance: VECURONIUM BROMIDE
  3. AMIKACIN SULFATE [Interacting]
     Active Substance: AMIKACIN SULFATE
     Dosage: 1 G/D
  4. PREDNISONE [Suspect]
     Active Substance: PREDNISONE
     Dosage: 60 MG, DAILY
     Route: 048

REACTIONS (6)
  - Therapeutic product effect prolonged [Recovered/Resolved]
  - Quadriplegia [Recovered/Resolved]
  - Hypotonia [Recovered/Resolved]
  - Facial paresis [Recovered/Resolved]
  - Extraocular muscle disorder [Recovered/Resolved]
  - Potentiating drug interaction [Unknown]
